FAERS Safety Report 9399895 (Version 2)
Quarter: 2013Q3

REPORT INFORMATION
  Report Type: Spontaneous
  Country: US (occurrence: US)
  Receive Date: 20130715
  Receipt Date: 20130812
  Transmission Date: 20140515
  Serious: No
  Sender: FDA-Public Use
  Company Number: US-TEVA-418233USA

PATIENT
  Age: 30 Year
  Sex: Female
  Weight: 54.93 kg

DRUGS (2)
  1. PARAGARD 380A [Suspect]
     Indication: CONTRACEPTION
     Route: 015
     Dates: start: 20091208, end: 20130708
  2. THYROXIN [Concomitant]
     Indication: HYPOTHYROIDISM

REACTIONS (2)
  - Device expulsion [Recovered/Resolved]
  - Vaginal discharge [Unknown]
